FAERS Safety Report 8957443 (Version 1)
Quarter: 2012Q4

REPORT INFORMATION
  Report Type: Spontaneous
  Country: PE (occurrence: None)
  Receive Date: 20121130
  Receipt Date: 20121130
  Transmission Date: 20130627
  Serious: Yes (Death)
  Sender: FDA-Public Use
  Company Number: DSA_61136_2012

PATIENT
  Sex: Male

DRUGS (2)
  1. WELLBUTRIN XL [Suspect]
     Indication: DEPRESSION
     Route: 048
     Dates: start: 20090930
  2. SERETIDE MDI [Suspect]
     Indication: CHRONIC OBSTRUCTIVE PULMONARY DISEASE
     Dosage: (1 puff Respiratory (inhalation))
     Route: 055
     Dates: end: 20081221

REACTIONS (3)
  - Chronic obstructive pulmonary disease [None]
  - Depression [None]
  - Emphysema [None]
